FAERS Safety Report 9601295 (Version 2)
Quarter: 2013Q4

REPORT INFORMATION
  Report Type: Spontaneous
  Country: BR (occurrence: BR)
  Receive Date: 20131006
  Receipt Date: 20131216
  Transmission Date: 20140711
  Serious: Yes (Hospitalization, Other)
  Sender: FDA-Public Use
  Company Number: BR-PFIZER INC-2013282040

PATIENT
  Age: 80 Year
  Sex: Female
  Weight: 70 kg

DRUGS (10)
  1. XALATAN [Suspect]
     Indication: GLAUCOMA
     Dosage: 3 UG, 1 DROP IN EACH EYE ONCE A DAY
     Route: 047
     Dates: start: 20081030
  2. XALATAN [Suspect]
     Indication: CATARACT
  3. LIPITOR [Suspect]
     Indication: BLOOD CHOLESTEROL ABNORMAL
     Dosage: 20 UNK, 1X/DAY
     Route: 048
     Dates: start: 20120723
  4. RIVOTRIL [Suspect]
     Dosage: UNK
     Route: 048
  5. CHLORTALIDONE [Concomitant]
     Indication: HYPERTENSION
     Dosage: UNK, ONCE A DAY
  6. CHLORTALIDONE [Concomitant]
     Indication: DIURETIC THERAPY
  7. LEVOTHYROXINE SODIUM [Concomitant]
     Dosage: UNK, ONCE A DAY WHILE FASTING
  8. LOSARTAN POTASSIUM [Concomitant]
     Indication: HYPERTENSION
     Dosage: UNK, TWICE A DAY
  9. METHOTREXATE [Concomitant]
     Indication: RHEUMATOID ARTHRITIS
     Dosage: UNK, ONCE A DAY
  10. RYTMONORM [Concomitant]
     Indication: ARRHYTHMIA
     Dosage: UNK, ONCE A DAY

REACTIONS (15)
  - Arrhythmia [Recovered/Resolved]
  - Hypertension [Recovered/Resolved]
  - Thrombosis [Unknown]
  - Local swelling [Unknown]
  - Erythema [Unknown]
  - Lower limb fracture [Unknown]
  - Fall [Unknown]
  - Spinal deformity [Not Recovered/Not Resolved]
  - Pelvic pain [Unknown]
  - Amnesia [Not Recovered/Not Resolved]
  - Walking aid user [Unknown]
  - Off label use [Not Recovered/Not Resolved]
  - Weight increased [Unknown]
  - Hypoacusis [Not Recovered/Not Resolved]
  - Pruritus [Not Recovered/Not Resolved]
